FAERS Safety Report 9496703 (Version 1)
Quarter: 2013Q3

REPORT INFORMATION
  Report Type: Spontaneous
  Country: US (occurrence: None)
  Receive Date: 20130903
  Receipt Date: 20130903
  Transmission Date: 20140515
  Serious: Yes (Death)
  Sender: FDA-Public Use
  Company Number: None

PATIENT
  Age: 76 Year
  Sex: Female
  Weight: 63.5 kg

DRUGS (1)
  1. ZPAK [Suspect]
     Dosage: HOSPITAL ADMISSION

REACTIONS (2)
  - Diarrhoea haemorrhagic [None]
  - Clostridium difficile colitis [None]
